FAERS Safety Report 13065006 (Version 6)
Quarter: 2017Q2

REPORT INFORMATION
  Report Type: Report from Study
  Country: None (occurrence: CO)
  Receive Date: 20161227
  Receipt Date: 20170406
  Transmission Date: 20170830
  Serious: Yes (Hospitalization)
  Sender: FDA-Public Use
  Company Number: CO-ABBVIE-16K-036-1822280-00

PATIENT
  Age: 42 Year
  Sex: Female
  Weight: 67 kg

DRUGS (2)
  1. METHOTREXATE. [Suspect]
     Active Substance: METHOTREXATE
     Indication: PRODUCT USED FOR UNKNOWN INDICATION
     Route: 065
  2. HUMIRA [Suspect]
     Active Substance: ADALIMUMAB
     Indication: RHEUMATOID ARTHRITIS
     Route: 058
     Dates: start: 20100901, end: 20161207

REACTIONS (10)
  - Nasal ulcer [Unknown]
  - Epistaxis [Recovering/Resolving]
  - Influenza [Not Recovered/Not Resolved]
  - Chest pain [Unknown]
  - Pyrexia [Unknown]
  - Arthralgia [Unknown]
  - Asthenia [Unknown]
  - Headache [Unknown]
  - Pneumonia [Recovering/Resolving]
  - Pulmonary fibrosis [Unknown]

NARRATIVE: CASE EVENT DATE: 20161202
